FAERS Safety Report 21760370 (Version 2)
Quarter: 2023Q1

REPORT INFORMATION
  Report Type: Spontaneous
  Country: US (occurrence: US)
  Receive Date: 20221221
  Receipt Date: 20230213
  Transmission Date: 20230418
  Serious: Yes (Other)
  Sender: FDA-Public Use
  Company Number: US-REGENERON PHARMACEUTICALS, INC.-2022-161212

PATIENT
  Sex: Male

DRUGS (6)
  1. EYLEA [Suspect]
     Active Substance: AFLIBERCEPT
     Indication: Macular degeneration
     Dosage: 2 MG, EVERY 4 WEEKS IN RIGHT EYE; (FORMULATION: GERRESHEIMER, STRENGTH: 2MG/0.05ML)
     Dates: start: 20211028
  2. EYLEA [Suspect]
     Active Substance: AFLIBERCEPT
     Dosage: 2 MG, EVERY 4 WEEKS IN RIGHT EYE; (FORMULATION: GERRESHEIMER, STRENGTH: 2MG/0.05ML)
     Dates: start: 20221010, end: 20221010
  3. EYLEA [Suspect]
     Active Substance: AFLIBERCEPT
     Dosage: 2 MG, EVERY 4 WEEKS IN RIGHT EYE; (FORMULATION: GERRESHEIMER, STRENGTH: 2MG/0.05ML)
  4. JANUVIA [Concomitant]
     Active Substance: SITAGLIPTIN PHOSPHATE
     Indication: Product used for unknown indication
  5. METFORMIN [Concomitant]
     Active Substance: METFORMIN HYDROCHLORIDE
     Indication: Product used for unknown indication
  6. CORTUS [Concomitant]
     Indication: Product used for unknown indication

REACTIONS (2)
  - Blindness transient [Recovered/Resolved]
  - Endophthalmitis [Recovered/Resolved]

NARRATIVE: CASE EVENT DATE: 20221015
